FAERS Safety Report 10243734 (Version 2)
Quarter: 2014Q2

REPORT INFORMATION
  Report Type: Report from Study
  Country: DE (occurrence: DE)
  Receive Date: 20140618
  Receipt Date: 20140618
  Transmission Date: 20141212
  Serious: Yes (Death, Hospitalization)
  Sender: FDA-Public Use
  Company Number: DE-SA-CAMP-1002712

PATIENT
  Age: 72 Year
  Sex: Female
  Weight: 50 kg

DRUGS (8)
  1. ALEMTUZUMAB [Suspect]
     Indication: T-CELL PROLYMPHOCYTIC LEUKAEMIA
     Dosage: 10.0 MG, QD
     Route: 059
     Dates: start: 20120925, end: 20130118
  2. FLUDARABINE PHOSPHATE [Suspect]
     Indication: T-CELL PROLYMPHOCYTIC LEUKAEMIA
     Dosage: 31.8 MG, QD
     Route: 042
     Dates: start: 20120925, end: 20121220
  3. MITOXANTRONE [Suspect]
     Indication: T-CELL PROLYMPHOCYTIC LEUKAEMIA
     Dosage: 9.5 MG, QD
     Route: 042
     Dates: start: 20120925, end: 20121218
  4. CYCLOPHOSPHAMIDE [Suspect]
     Indication: T-CELL PROLYMPHOCYTIC LEUKAEMIA
     Dosage: 318.0 MG, QD
     Route: 042
     Dates: start: 20120925, end: 20121220
  5. ZOPICLONE [Concomitant]
     Dosage: STRENGTH: 7.5 MG
     Route: 048
     Dates: end: 20131230
  6. OMEPRAZOLE [Concomitant]
     Dosage: STRENGTH: 20 MG
     Route: 048
     Dates: end: 20130130
  7. MIRTAZAPINE [Concomitant]
     Route: 048
     Dates: end: 20130130
  8. RAMIPRIL [Concomitant]
     Dosage: 5/25 MG
     Route: 048
     Dates: end: 20130130

REACTIONS (3)
  - Sepsis [Fatal]
  - Loss of consciousness [Unknown]
  - Urinary tract infection [Not Recovered/Not Resolved]
